FAERS Safety Report 5437160-X (Version None)
Quarter: 2007Q3

REPORT INFORMATION
  Report Type: 
  Country: None (occurrence: None)
  Receive Date: 20070831
  Receipt Date: 20070827
  Transmission Date: 20080115
  Serious: Yes (Other)
  Sender: FDA-Public Use
  Company Number: BR-ASTRAZENECA-2007UW20582

PATIENT
  Age: 78 Year
  Sex: Female
  Weight: 75 kg

DRUGS (5)
  1. SELOZOK [Suspect]
     Indication: HYPERTENSION
     Route: 048
     Dates: start: 20040401
  2. OMEPRAZOLE [Concomitant]
     Dates: start: 19980101
  3. DIOVAN [Concomitant]
     Indication: HYPERTENSION
     Route: 048
     Dates: start: 20040401
  4. HYGROTON [Concomitant]
     Indication: DIURETIC THERAPY
     Route: 048
     Dates: start: 20040401
  5. VASCLIN [Concomitant]
     Indication: PLATELET AGGREGATION
     Route: 048
     Dates: start: 20040401

REACTIONS (2)
  - RASH [None]
  - WEIGHT INCREASED [None]
